FAERS Safety Report 8816499 (Version 1)
Quarter: 2012Q4

REPORT INFORMATION
  Report Type: Spontaneous
  Country: JP (occurrence: None)
  Receive Date: 20120927
  Receipt Date: 20120927
  Transmission Date: 20130627
  Serious: Yes (Other)
  Sender: FDA-Public Use
  Company Number: DSA_59828_2012

PATIENT
  Age: 57 Year
  Sex: Male

DRUGS (3)
  1. FLUOROURACIL (FLUOROURACIL) [Suspect]
     Indication: HEAD AND NECK CANCER
     Dosage: 750 mg/m2, daily, on days 1-5 every 3 weeks intravenous
     Dates: start: 20101202, end: 20101223
  2. TAXOTERE [Suspect]
     Indication: HEAD AND NECK CANCER
     Route: 042
     Dates: start: 20101202, end: 20101223
  3. CISPLATIN [Suspect]
     Indication: HEAD AND NECK CANCER
     Route: 042
     Dates: start: 20101202, end: 20101223

REACTIONS (1)
  - Neutropenia [None]
